FAERS Safety Report 5019428-4 (Version None)
Quarter: 2006Q2

REPORT INFORMATION
  Report Type: 
  Country: None (occurrence: None)
  Receive Date: 20060531
  Receipt Date: 20060523
  Transmission Date: 20061013
  Serious: Yes (Other)
  Sender: FDA-Public Use
  Company Number: HQWYE0504723MAY06

PATIENT
  Age: 26 Year
  Sex: Female

DRUGS (1)
  1. TRIQUILAR-21                     (LEVONORGESTREL/ETHINYL ESTRADIOL) [Suspect]
     Dosage: 1 TABLET, OTHER ORAL
     Route: 048
     Dates: start: 20020101, end: 20060403

REACTIONS (5)
  - ABORTION THREATENED [None]
  - ANTEPARTUM HAEMORRHAGE [None]
  - BLOOD PRESSURE INCREASED [None]
  - DRUG INEFFECTIVE [None]
  - PREGNANCY ON ORAL CONTRACEPTIVE [None]
